FAERS Safety Report 5195819-6 (Version None)
Quarter: 2006Q4

REPORT INFORMATION
  Report Type: 
  Country: None (occurrence: None)
  Receive Date: 20061227
  Receipt Date: 20061124
  Transmission Date: 20070319
  Serious: No
  Sender: FDA-Public Use
  Company Number: 20063345

PATIENT
  Sex: Male

DRUGS (1)
  1. LIORESAL [Suspect]
     Indication: MUSCLE SPASTICITY
     Dosage: MCG, DAILY, INTRATHECAL
     Route: 037

REACTIONS (5)
  - ABNORMAL BEHAVIOUR [None]
  - AGITATION [None]
  - DRUG INEFFECTIVE [None]
  - LETHARGY [None]
  - ORAL INTAKE REDUCED [None]
